FAERS Safety Report 11117339 (Version 2)
Quarter: 2015Q3

REPORT INFORMATION
  Report Type: Report from Study
  Country: NZ (occurrence: NZ)
  Receive Date: 20150515
  Receipt Date: 20150714
  Transmission Date: 20151125
  Serious: Yes (Death, Hospitalization, Other)
  Sender: FDA-Public Use
  Company Number: PHHY2015NZ051804

PATIENT
  Age: 50 Year
  Sex: Male

DRUGS (3)
  1. CLOZARIL [Suspect]
     Active Substance: CLOZAPINE
     Indication: SCHIZOPHRENIA
  2. SODIUM VALPROATE [Concomitant]
     Active Substance: VALPROATE SODIUM
     Indication: SEIZURE
     Dosage: 1000 MG, BID
     Route: 048
  3. CLOZARIL [Suspect]
     Active Substance: CLOZAPINE
     Indication: PSYCHOTIC DISORDER
     Dosage: 400 MG, NOCTE
     Route: 048
     Dates: start: 20081010

REACTIONS (12)
  - Paresis [Unknown]
  - Disorientation [Unknown]
  - Asphyxia [Fatal]
  - Cerebral infarction [Unknown]
  - Paralysis [Unknown]
  - Aphasia [Unknown]
  - Parkinson^s disease [Unknown]
  - Asthenia [Unknown]
  - Confusional state [Unknown]
  - Dysphagia [Unknown]
  - Choking [Fatal]
  - Loss of consciousness [Unknown]

NARRATIVE: CASE EVENT DATE: 20141231
